FAERS Safety Report 8102305-X (Version None)
Quarter: 2012Q1

REPORT INFORMATION
  Report Type: 
  Country: None (occurrence: None)
  Receive Date: 20120201
  Receipt Date: 20120126
  Transmission Date: 20120608
  Serious: No
  Sender: FDA-Public Use
  Company Number: US-PFIZER INC-2012022450

PATIENT
  Sex: Female
  Weight: 72.562 kg

DRUGS (19)
  1. TOPROL-XL [Concomitant]
     Dosage: 5 MG, UNK
  2. AMOXICILLIN [Concomitant]
     Dosage: UNK
  3. VFEND [Suspect]
     Indication: RED BLOOD CELL SEDIMENTATION RATE ABNORMAL
     Dosage: 200 MG, 2X/DAY
     Route: 048
     Dates: start: 20111001
  4. VITAMIN D [Concomitant]
     Dosage: UNK
  5. VFEND [Suspect]
     Indication: INFECTION
  6. CRESTOR [Concomitant]
     Dosage: UNK
  7. METFORMIN [Concomitant]
     Dosage: UNK
  8. PROTONIX [Concomitant]
     Dosage: UNK
  9. LORAZEPAM [Concomitant]
     Dosage: UNK
  10. ZOLOFT [Concomitant]
     Dosage: UNK
  11. MELOXICAM [Concomitant]
     Dosage: UNK
  12. HYDROCODONE [Concomitant]
     Dosage: UNK
  13. PLAVIX [Concomitant]
     Dosage: UNK
  14. TAMSULOSIN [Concomitant]
     Dosage: UNK
  15. LEVOXYL [Concomitant]
     Dosage: UNK
  16. ALLOPURINOL [Concomitant]
     Dosage: UNK
  17. PILOCARPINE [Concomitant]
     Dosage: UNK
  18. ACETYLSALICYLIC ACID [Concomitant]
     Dosage: 325 MG, UNK
  19. TRAZODONE [Concomitant]
     Dosage: UNK

REACTIONS (2)
  - RED BLOOD CELL SEDIMENTATION RATE ABNORMAL [None]
  - DRUG LEVEL DECREASED [None]
